FAERS Safety Report 10918235 (Version 3)
Quarter: 2016Q3

REPORT INFORMATION
  Report Type: Spontaneous
  Country: US (occurrence: US)
  Receive Date: 20150316
  Receipt Date: 20160915
  Transmission Date: 20161109
  Serious: No
  Sender: FDA-Public Use
  Company Number: US-ASTELLAS-2015US000703

PATIENT
  Sex: Male

DRUGS (4)
  1. XTANDI [Suspect]
     Active Substance: ENZALUTAMIDE
     Indication: PROSTATE CANCER
     Dosage: 160 MG, PER DAY
     Route: 065
     Dates: start: 201309, end: 201409
  2. XTANDI [Suspect]
     Active Substance: ENZALUTAMIDE
     Dosage: 120 MG, PER DAY
     Route: 065
     Dates: start: 201409
  3. XTANDI [Suspect]
     Active Substance: ENZALUTAMIDE
     Route: 065
  4. OMEPRAZOLE. [Concomitant]
     Active Substance: OMEPRAZOLE
     Indication: PRODUCT USED FOR UNKNOWN INDICATION
     Dosage: UNK UNK, UNKNOWN FREQ.
     Route: 065

REACTIONS (7)
  - Fatigue [Unknown]
  - Adverse event [Unknown]
  - Gastrooesophageal reflux disease [Unknown]
  - Depression [Unknown]
  - Diarrhoea [Unknown]
  - Drug dose omission [Unknown]
  - Adverse drug reaction [Unknown]
